FAERS Safety Report 6101191-7 (Version None)
Quarter: 2009Q1

REPORT INFORMATION
  Report Type: 
  Country: None (occurrence: None)
  Receive Date: 20090304
  Receipt Date: 20090227
  Transmission Date: 20090719
  Serious: Yes (Other)
  Sender: FDA-Public Use
  Company Number: US-ELI_LILLY_AND_COMPANY-US200903000274

PATIENT
  Sex: Male
  Weight: 140.14 kg

DRUGS (4)
  1. BYETTA [Suspect]
     Indication: TYPE 2 DIABETES MELLITUS
     Dosage: 10 UG, 2/D
     Route: 058
     Dates: start: 20081215, end: 20081215
  2. BYETTA [Suspect]
     Dosage: 5 UG, 2/D
     Route: 058
     Dates: start: 20081216
  3. GLYBURIDE [Concomitant]
     Dates: end: 20081215
  4. METFORMIN HCL [Concomitant]
     Dates: end: 20080101

REACTIONS (6)
  - APHASIA [None]
  - BLOOD GLUCOSE INCREASED [None]
  - DECREASED APPETITE [None]
  - HYPOGLYCAEMIC UNCONSCIOUSNESS [None]
  - TREMOR [None]
  - WEIGHT DECREASED [None]
